FAERS Safety Report 18957357 (Version 1)
Quarter: 2021Q1

REPORT INFORMATION
  Report Type: Spontaneous
  Country: US (occurrence: US)
  Receive Date: 20210302
  Receipt Date: 20210302
  Transmission Date: 20210420
  Serious: No
  Sender: FDA-Public Use
  Company Number: US-PERSON AND COVEY-2107470

PATIENT
  Sex: Female

DRUGS (1)
  1. DHS ZINC [Suspect]
     Active Substance: PYRITHIONE ZINC
     Indication: DANDRUFF
     Dates: start: 20210224, end: 20210224

REACTIONS (1)
  - Eye irritation [Unknown]

NARRATIVE: CASE EVENT DATE: 20210224
